FAERS Safety Report 8095011-1 (Version None)
Quarter: 2012Q1

REPORT INFORMATION
  Report Type: 
  Country: None (occurrence: None)
  Receive Date: 20120131
  Receipt Date: 20120131
  Transmission Date: 20120608
  Serious: Yes (Hospitalization)
  Sender: FDA-Public Use
  Company Number: None

PATIENT
  Age: 81 Year
  Sex: Male

DRUGS (6)
  1. RAPAFLO [Concomitant]
  2. AMLODIPINE [Suspect]
     Indication: HYPERTENSION
     Dosage: 5MG
     Route: 048
  3. LISINOPRIL [Concomitant]
  4. CEFTIN [Concomitant]
  5. SINEMET [Concomitant]
  6. ACETAMINOPHEN [Concomitant]

REACTIONS (1)
  - SYNCOPE [None]
